FAERS Safety Report 8969797 (Version 1)
Quarter: 2012Q4

REPORT INFORMATION
  Report Type: 
  Country: BR (occurrence: BR)
  Receive Date: 20121218
  Receipt Date: 20121218
  Transmission Date: 20130627
  Serious: Yes (Other)
  Sender: FDA-Public Use
  Company Number: BR-AMGEN-BRASP2012044174

PATIENT
  Age: 59 Year
  Sex: Female
  Weight: 31.75 kg

DRUGS (12)
  1. ENBREL [Suspect]
     Indication: RHEUMATOID ARTHRITIS
     Dosage: UNK
     Dates: start: 2005
  2. ENBREL [Suspect]
     Dosage: 50 mg, weekly
     Dates: start: 201111
  3. METICORTEN [Concomitant]
     Dosage: UNK
  4. METHOTREXATE [Concomitant]
     Dosage: UNK
  5. ENDOFOLIN [Concomitant]
     Dosage: UNK
  6. PURAN T4 [Concomitant]
     Dosage: UNK
  7. OMEPRAZOL                          /00661201/ [Concomitant]
     Dosage: UNK
  8. HARPADOL [Concomitant]
     Dosage: UNK
  9. PROTOS                             /01556702/ [Concomitant]
     Dosage: UNK
  10. NAPRIX [Concomitant]
     Indication: BLOOD PRESSURE INCREASED
     Dosage: 2 tablets (5 mg each) a day
  11. CRESTOR [Concomitant]
     Indication: BLOOD CHOLESTEROL ABNORMAL
     Dosage: UNK
  12. LIPANON [Concomitant]
     Indication: BLOOD CHOLESTEROL ABNORMAL
     Dosage: 25 mg, UNK

REACTIONS (4)
  - Abasia [Unknown]
  - Joint injury [Unknown]
  - Injection site mass [Unknown]
  - Injection site pain [Unknown]
